FAERS Safety Report 7964136-0 (Version None)
Quarter: 2011Q4

REPORT INFORMATION
  Report Type: 
  Country: None (occurrence: None)
  Receive Date: 20111208
  Receipt Date: 20111205
  Transmission Date: 20120403
  Serious: Yes (Death, Other)
  Sender: FDA-Public Use
  Company Number: US-AMGEN-USASP2011061658

PATIENT
  Age: 35 Year
  Sex: Male

DRUGS (3)
  1. CORTICOSTEROIDS [Concomitant]
     Indication: THROMBOCYTOPENIA
  2. NPLATE [Suspect]
     Indication: THROMBOCYTOPENIA
     Dosage: 250 MUG, UNK
     Dates: start: 20110519, end: 20110721
  3. PLATELETS [Concomitant]

REACTIONS (3)
  - INFECTION [None]
  - POST PROCEDURAL INFECTION [None]
  - NON-HODGKIN'S LYMPHOMA [None]
